FAERS Safety Report 9029660 (Version 1)
Quarter: 2013Q1

REPORT INFORMATION
  Report Type: Spontaneous
  Country: JP (occurrence: JP)
  Receive Date: 20130125
  Receipt Date: 20130125
  Transmission Date: 20140127
  Serious: Yes (Other)
  Sender: FDA-Public Use
  Company Number: PHHY2013JP007085

PATIENT
  Sex: 0

DRUGS (1)
  1. NEORAL [Suspect]
     Route: 048

REACTIONS (2)
  - Ascites [Unknown]
  - Renal disorder [Unknown]
